FAERS Safety Report 9658527 (Version 2)
Quarter: 2013Q4

REPORT INFORMATION
  Report Type: Spontaneous
  Country: US (occurrence: US)
  Receive Date: 20131030
  Receipt Date: 20131030
  Transmission Date: 20140711
  Serious: No
  Sender: FDA-Public Use
  Company Number: US-PURDUE-USA-2010-0051429

PATIENT
  Sex: Female

DRUGS (4)
  1. OXYCONTIN (NDA 22-272) [Suspect]
     Indication: PAIN
     Dosage: 60 MG, Q8H
     Route: 048
     Dates: start: 20100923
  2. OXYCONTIN (NDA 22-272) [Suspect]
     Dosage: 40 MG, UNK
  3. OXYCONTIN (NDA 22-272) [Suspect]
     Dosage: 20 MG, UNK
  4. OXYCONTIN (NDA 22-272) [Suspect]
     Dosage: 10 MG, UNK

REACTIONS (3)
  - Headache [Unknown]
  - Drug effect decreased [Unknown]
  - Inadequate analgesia [Unknown]
